FAERS Safety Report 9989365 (Version 1)
Quarter: 2014Q1

REPORT INFORMATION
  Report Type: Spontaneous
  Country: US (occurrence: US)
  Receive Date: 20140310
  Receipt Date: 20140310
  Transmission Date: 20141002
  Serious: Yes (Other)
  Sender: FDA-Public Use
  Company Number: US-SA-2014SA028751

PATIENT
  Sex: Female

DRUGS (2)
  1. HECTOROL [Suspect]
     Indication: PRODUCT USED FOR UNKNOWN INDICATION
     Dosage: VITAMIN D VIAL. HECTORAL 2 MCG
     Route: 065
     Dates: start: 20140125, end: 20140125
  2. HECTOROL [Suspect]
     Indication: PRODUCT USED FOR UNKNOWN INDICATION
     Dosage: HECTORAL 2 MCG
     Route: 065
     Dates: start: 20140128, end: 20140128

REACTIONS (2)
  - Chest pain [Unknown]
  - Dyspnoea [Unknown]
